FAERS Safety Report 5587740-6 (Version None)
Quarter: 2007Q4

REPORT INFORMATION
  Report Type: 
  Country: None (occurrence: None)
  Receive Date: 20071210
  Receipt Date: 20070731
  Transmission Date: 20080405
  Serious: Yes (Other)
  Sender: FDA-Public Use
  Company Number: SPVI-2007-03638

PATIENT
  Age: 15 Year
  Sex: Female
  Weight: 54.4 kg

DRUGS (1)
  1. ADDERALL 10 [Suspect]
     Dosage: 20 MG, ONE DOSE, ORAL
     Route: 048
     Dates: start: 20070716, end: 20070716

REACTIONS (2)
  - CONVULSION [None]
  - INTENTIONAL DRUG MISUSE [None]
